FAERS Safety Report 10209490 (Version 1)
Quarter: 2014Q2

REPORT INFORMATION
  Report Type: Report from Study
  Country: US (occurrence: US)
  Receive Date: 20140601
  Receipt Date: 20140601
  Transmission Date: 20141212
  Serious: Yes (Death)
  Sender: FDA-Public Use
  Company Number: PHEH2014US010967

PATIENT
  Sex: Male

DRUGS (2)
  1. SANDIMMUNE [Suspect]
     Indication: RENAL TRANSPLANT
     Dosage: 25 MG (2 CAPSULES IN THE AM AND 1 CAPSULES IN THE PM )
     Route: 048
  2. SANDIMMUNE [Suspect]
     Indication: RENAL FAILURE CHRONIC
     Dosage: 100 MG, TWICE A DAY
     Route: 048

REACTIONS (1)
  - Death [Fatal]
